APPROVED DRUG PRODUCT: ELTROMBOPAG OLAMINE
Active Ingredient: ELTROMBOPAG OLAMINE
Strength: EQ 12.5MG ACID
Dosage Form/Route: TABLET;ORAL
Application: A220250 | Product #001 | TE Code: AB
Applicant: MSN LABORATORIES PRIVATE LTD
Approved: Jan 14, 2026 | RLD: No | RS: No | Type: RX